FAERS Safety Report 18444217 (Version 1)
Quarter: 2020Q4

REPORT INFORMATION
  Report Type: Spontaneous
  Country: CN (occurrence: CN)
  Receive Date: 20201030
  Receipt Date: 20201030
  Transmission Date: 20210114
  Serious: Yes (Other)
  Sender: FDA-Public Use
  Company Number: CN-BAXTER-2020BAX022059

PATIENT
  Age: 3 Year
  Sex: Male

DRUGS (4)
  1. AAOLUONA (TOPOTECAN HYDROCHLORIDE) [Suspect]
     Active Substance: TOPOTECAN HYDROCHLORIDE
     Indication: NEOPLASM MALIGNANT
     Dosage: AAOLUONA 0.45 MG + NS 100ML
     Route: 041
     Dates: start: 20201012, end: 20201016
  2. ENDOXAN [Suspect]
     Active Substance: CYCLOPHOSPHAMIDE
     Indication: NEOPLASM MALIGNANT
     Dosage: CYCLOPHOSPHAMIDE 0.5 G + NS 20ML
     Route: 041
     Dates: start: 20201012, end: 20201016
  3. 0.9% SODIUM CHLORIDE INJECTION [Suspect]
     Active Substance: SODIUM CHLORIDE
     Dosage: AAOLUONA 0.45 MG + NS 100ML
     Route: 041
     Dates: start: 20201012, end: 20201016
  4. 0.9% SODIUM CHLORIDE INJECTION [Suspect]
     Active Substance: SODIUM CHLORIDE
     Indication: MEDICATION DILUTION
     Dosage: CYCLOPHOSPHAMIDE 0.5 G + NS 20ML
     Route: 041
     Dates: start: 20201012, end: 20201016

REACTIONS (1)
  - Myelosuppression [Unknown]

NARRATIVE: CASE EVENT DATE: 20201017
